FAERS Safety Report 7161475-0 (Version None)
Quarter: 2010Q4

REPORT INFORMATION
  Report Type: 
  Country: None (occurrence: None)
  Receive Date: 20101215
  Receipt Date: 20101209
  Transmission Date: 20110411
  Serious: Yes (Hospitalization)
  Sender: FDA-Public Use
  Company Number: PHHO2007ES18905

PATIENT
  Sex: Female
  Weight: 61.5 kg

DRUGS (6)
  1. TACROLIMUS [Suspect]
     Indication: RENAL TRANSPLANT
  2. RAD 666 / RAD 001A [Suspect]
     Indication: RENAL TRANSPLANT
     Dosage: 2 MG
     Route: 048
     Dates: start: 20071105
  3. RAD 666 / RAD 001A [Suspect]
     Dosage: 4 MG
  4. MYFORTIC [Concomitant]
     Indication: RENAL TRANSPLANT
     Dosage: 1080 MG
     Route: 048
  5. MYFORTIC [Concomitant]
     Dosage: 360 MG, BID
  6. PREDNISONE [Concomitant]
     Dosage: 5 (NO UNIT)

REACTIONS (4)
  - DYSURIA [None]
  - PAIN [None]
  - PYREXIA [None]
  - URINARY TRACT INFECTION [None]
